FAERS Safety Report 14658696 (Version 1)
Quarter: 2018Q1

REPORT INFORMATION
  Report Type: Spontaneous
  Country: US (occurrence: US)
  Receive Date: 20180320
  Receipt Date: 20180320
  Transmission Date: 20180509
  Serious: No
  Sender: FDA-Public Use
  Company Number: US-PFIZER INC-2018098164

PATIENT
  Age: 78 Year
  Sex: Female
  Weight: 68 kg

DRUGS (4)
  1. GENOTROPIN MQ [Suspect]
     Active Substance: SOMATROPIN
     Indication: HORMONE LEVEL ABNORMAL
     Dosage: 0.6 MG, 1X/DAY
     Route: 058
     Dates: start: 2004
  2. GENOTROPIN MQ [Suspect]
     Active Substance: SOMATROPIN
     Dosage: 0.6 MG, DAILY
  3. SYNTHROID [Concomitant]
     Active Substance: LEVOTHYROXINE SODIUM
     Indication: THYROID DISORDER
     Dosage: 50 UG, 1X/DAY
     Route: 048
  4. PREMARIN [Concomitant]
     Active Substance: ESTROGENS, CONJUGATED
     Indication: HYSTERECTOMY
     Dosage: 0.6 MG, 1X/DAY
     Route: 048
     Dates: start: 1973

REACTIONS (2)
  - Drug dose omission [Unknown]
  - Irritability [Unknown]

NARRATIVE: CASE EVENT DATE: 201801
